FAERS Safety Report 13022504 (Version 1)
Quarter: 2016Q4

REPORT INFORMATION
  Report Type: Spontaneous
  Country: ZA (occurrence: ZA)
  Receive Date: 20161213
  Receipt Date: 20161213
  Transmission Date: 20170207
  Serious: Yes (Other)
  Sender: FDA-Public Use
  Company Number: ZA-PFIZER INC-2016566846

PATIENT
  Age: 53 Year
  Sex: Female

DRUGS (2)
  1. LIVIFEM [Concomitant]
     Indication: HORMONE THERAPY
     Dosage: 2.5 MG, DAILY
     Route: 048
     Dates: start: 20160508, end: 20161204
  2. ACCUMAX CO [Suspect]
     Active Substance: HYDROCHLOROTHIAZIDE\QUINAPRIL HYDROCHLORIDE
     Indication: DIURETIC THERAPY
     Dosage: 20/12.5MG, DAILY
     Route: 048
     Dates: start: 20161129, end: 20161204

REACTIONS (1)
  - Breast cancer [Unknown]

NARRATIVE: CASE EVENT DATE: 20161205
